FAERS Safety Report 25708759 (Version 1)
Quarter: 2025Q3

REPORT INFORMATION
  Report Type: Spontaneous
  Country: MY (occurrence: MY)
  Receive Date: 20250821
  Receipt Date: 20250821
  Transmission Date: 20251021
  Serious: Yes (Hospitalization)
  Sender: NOVITIUM PHARMA
  Company Number: MY-NOVITIUMPHARMA-2025MYNVP02047

PATIENT
  Age: 23 Year
  Sex: Female
  Weight: 47 kg

DRUGS (11)
  1. DIGOXIN [Suspect]
     Active Substance: DIGOXIN
     Indication: Tachycardia foetal
     Route: 048
  2. DIGOXIN [Suspect]
     Active Substance: DIGOXIN
     Route: 042
  3. DIGOXIN [Suspect]
     Active Substance: DIGOXIN
     Dosage: MAINTENANCE DOSE OF 250MCG TWICE DAILY
     Route: 048
  4. DIGOXIN [Suspect]
     Active Substance: DIGOXIN
  5. DIGOXIN [Suspect]
     Active Substance: DIGOXIN
     Route: 048
  6. DIGOXIN [Suspect]
     Active Substance: DIGOXIN
     Route: 048
  7. DIGOXIN [Suspect]
     Active Substance: DIGOXIN
  8. DIGOXIN [Suspect]
     Active Substance: DIGOXIN
  9. FLECAINIDE [Concomitant]
     Active Substance: FLECAINIDE
     Indication: Tachycardia foetal
     Route: 048
  10. FLECAINIDE [Concomitant]
     Active Substance: FLECAINIDE
     Route: 048
  11. FLECAINIDE [Concomitant]
     Active Substance: FLECAINIDE

REACTIONS (3)
  - Treatment noncompliance [Unknown]
  - Toxicity to various agents [Unknown]
  - Exposure during pregnancy [Unknown]
